FAERS Safety Report 4795098-5 (Version None)
Quarter: 2005Q4

REPORT INFORMATION
  Report Type: 
  Country: None (occurrence: None)
  Receive Date: 20051012
  Receipt Date: 20050916
  Transmission Date: 20060501
  Serious: Yes (Other)
  Sender: FDA-Public Use
  Company Number: FR-BRISTOL-MYERS SQUIBB COMPANY-13114095

PATIENT
  Age: 14 Year
  Sex: Male

DRUGS (2)
  1. ABILIFY [Suspect]
     Indication: SCHIZOPHRENIA
     Route: 048
     Dates: start: 20050824, end: 20050916
  2. LOXAPAC [Interacting]
     Dates: start: 20050701, end: 20050916

REACTIONS (3)
  - DRUG INTERACTION [None]
  - HYPERHIDROSIS [None]
  - RHABDOMYOLYSIS [None]
